FAERS Safety Report 18164303 (Version 1)
Quarter: 2020Q3

REPORT INFORMATION
  Report Type: Spontaneous
  Country: US (occurrence: US)
  Receive Date: 20200818
  Receipt Date: 20200818
  Transmission Date: 20201103
  Serious: Yes (Other)
  Sender: FDA-Public Use
  Company Number: US-BIODELIVERY SCIENCES INTERNATIONAL-2020BDSI0513

PATIENT
  Sex: Female

DRUGS (2)
  1. BUPRENORPHINE. [Suspect]
     Active Substance: BUPRENORPHINE
     Dosage: UNKNOWN; UNKNOWN
     Route: 065
     Dates: start: 2020
  2. BUPRENORPHINE. [Suspect]
     Active Substance: BUPRENORPHINE
     Indication: PRODUCT USED FOR UNKNOWN INDICATION
     Dosage: UNKNOWN; UNKNOWN
     Route: 065
     Dates: start: 2020, end: 2020

REACTIONS (3)
  - Chest discomfort [Unknown]
  - Swollen tongue [Unknown]
  - Swelling face [Unknown]

NARRATIVE: CASE EVENT DATE: 2020
